FAERS Safety Report 20974527 (Version 1)
Quarter: 2022Q2

REPORT INFORMATION
  Report Type: Spontaneous
  Country: US (occurrence: None)
  Receive Date: 20220616
  Receipt Date: 20220616
  Transmission Date: 20220721
  Serious: Yes (Other)
  Sender: FDA-Public Use
  Company Number: None

PATIENT
  Age: 34 Year
  Sex: Female
  Weight: 69.3 kg

DRUGS (1)
  1. RESTASIS [Suspect]
     Active Substance: CYCLOSPORINE
     Indication: Dry eye
     Dosage: FREQUENCY : TWICE A DAY;?
     Route: 047
     Dates: start: 20220419, end: 20220519

REACTIONS (6)
  - Panic attack [None]
  - Anxiety [None]
  - Nervousness [None]
  - Nausea [None]
  - Paraesthesia [None]
  - Heart rate increased [None]

NARRATIVE: CASE EVENT DATE: 20220505
